FAERS Safety Report 12110408 (Version 1)
Quarter: 2016Q1

REPORT INFORMATION
  Report Type: Spontaneous
  Country: US (occurrence: US)
  Receive Date: 20160224
  Receipt Date: 20160224
  Transmission Date: 20160526
  Serious: No
  Sender: FDA-Public Use
  Company Number: US-ASTRAZENECA-2016SE16053

PATIENT
  Sex: Female

DRUGS (2)
  1. PULMICORT TURBUHALER [Suspect]
     Active Substance: BUDESONIDE
     Dosage: BUDESONIDE 2 PUFFS BY INHALATION DAILY,
     Route: 055
     Dates: start: 20160114
  2. PULMICORT TURBUHALER [Suspect]
     Active Substance: BUDESONIDE
     Dosage: 180 MCG 1 TIMES 120 DOSES, DAILY / DOSE
     Route: 055
     Dates: start: 20160114

REACTIONS (4)
  - Drug ineffective [Unknown]
  - Chest discomfort [Unknown]
  - Cough [Unknown]
  - Product quality issue [Unknown]
